FAERS Safety Report 24908776 (Version 1)
Quarter: 2025Q1

REPORT INFORMATION
  Report Type: Spontaneous
  Country: HR (occurrence: HR)
  Receive Date: 20250131
  Receipt Date: 20250131
  Transmission Date: 20250408
  Serious: Yes (Other)
  Sender: TEVA
  Company Number: HR-TEVA-VS-3291783

PATIENT
  Sex: Female

DRUGS (1)
  1. FREMANEZUMAB [Suspect]
     Active Substance: FREMANEZUMAB
     Indication: Migraine
     Route: 065

REACTIONS (8)
  - Migraine [Unknown]
  - Psychiatric decompensation [Recovering/Resolving]
  - Speech disorder [Unknown]
  - Anxiety [Recovering/Resolving]
  - Vomiting [Unknown]
  - Nausea [Unknown]
  - Loss of personal independence in daily activities [Unknown]
  - Depression [Recovering/Resolving]
